FAERS Safety Report 8988152 (Version 1)
Quarter: 2012Q4

REPORT INFORMATION
  Report Type: 
  Country: FR (occurrence: FR)
  Receive Date: 20121227
  Receipt Date: 20121227
  Transmission Date: 20130627
  Serious: Yes (Other)
  Sender: FDA-Public Use
  Company Number: FR-BRISTOL-MYERS SQUIBB COMPANY-17226465

PATIENT
  Age: 68 Year
  Sex: Female

DRUGS (2)
  1. TAXOL INJ [Suspect]
     Indication: BREAST CANCER
     Route: 042
     Dates: start: 20121211
  2. AVLOCARDYL [Concomitant]

REACTIONS (4)
  - Hypersensitivity [Unknown]
  - Alcohol intolerance [Unknown]
  - Abdominal pain upper [Unknown]
  - Headache [Unknown]
